FAERS Safety Report 11491641 (Version 2)
Quarter: 2016Q3

REPORT INFORMATION
  Report Type: Spontaneous
  Country: FR (occurrence: FR)
  Receive Date: 20150910
  Receipt Date: 20160726
  Transmission Date: 20161109
  Serious: Yes (Hospitalization, Other)
  Sender: FDA-Public Use
  Company Number: FR-PFIZER INC-2015300179

PATIENT
  Age: 47 Year
  Sex: Male

DRUGS (17)
  1. ZYLORIC [Concomitant]
     Active Substance: ALLOPURINOL
  2. AZANTAC [Concomitant]
     Active Substance: RANITIDINE HYDROCHLORIDE
  3. BACTRIM [Concomitant]
     Active Substance: SULFAMETHOXAZOLE\TRIMETHOPRIM
  4. ZELITREX [Concomitant]
     Active Substance: VALACYCLOVIR HYDROCHLORIDE
  5. DAUNORUBICIN [Suspect]
     Active Substance: DAUNORUBICIN
     Indication: ACUTE LYMPHOCYTIC LEUKAEMIA
     Dosage: UNK
     Dates: start: 20150512
  6. TAHOR [Concomitant]
     Active Substance: ATORVASTATIN CALCIUM
  7. COVERSYL [Concomitant]
     Active Substance: PERINDOPRIL
  8. LEDERFOLINE [Concomitant]
     Active Substance: LEUCOVORIN CALCIUM
  9. VINCRISTINE SULFATE. [Suspect]
     Active Substance: VINCRISTINE SULFATE
     Indication: CHRONIC LYMPHOCYTIC LEUKAEMIA
     Dosage: UNK
     Dates: start: 20150512
  10. SPRYCEL [Suspect]
     Active Substance: DASATINIB
     Dosage: UNK
  11. HYDROCORTISONE UPJOHN [Suspect]
     Active Substance: HYDROCORTISONE
     Indication: ACUTE LYMPHOCYTIC LEUKAEMIA
     Dosage: UNK
     Dates: start: 20150512
  12. DEXAMETHASONE. [Suspect]
     Active Substance: DEXAMETHASONE
     Dosage: UNK
  13. GRANOCYTE [Concomitant]
     Active Substance: LENOGRASTIM
  14. CYTARABINE SANDOZ [Suspect]
     Active Substance: CYTARABINE
     Indication: ACUTE LYMPHOCYTIC LEUKAEMIA
     Dosage: UNK
     Dates: start: 20150512
  15. KARDEGIC [Concomitant]
     Active Substance: ASPIRIN LYSINE
  16. METHOTREXATE SODIUM. [Suspect]
     Active Substance: METHOTREXATE SODIUM
     Indication: LYMPHOCYTIC LEUKAEMIA
     Dosage: UNK
     Dates: start: 20150512
  17. ENDOXAN [Suspect]
     Active Substance: CYCLOPHOSPHAMIDE
     Indication: ACUTE LYMPHOCYTIC LEUKAEMIA
     Dosage: UNK
     Dates: start: 20150512

REACTIONS (7)
  - Hepatocellular injury [Unknown]
  - Septic shock [Recovered/Resolved]
  - Hypotension [Unknown]
  - Febrile bone marrow aplasia [Recovered/Resolved]
  - Ischaemic hepatitis [Unknown]
  - Renal failure [Unknown]
  - Pancytopenia [Unknown]

NARRATIVE: CASE EVENT DATE: 20150518
